FAERS Safety Report 5669073-2 (Version None)
Quarter: 2008Q1

REPORT INFORMATION
  Report Type: 
  Country: None (occurrence: None)
  Receive Date: 20080226
  Receipt Date: 20071228
  Transmission Date: 20080703
  Serious: Yes (Hospitalization)
  Sender: FDA-Public Use
  Company Number: 467341

PATIENT
  Age: 18 Year
  Sex: Male
  Weight: 74.8 kg

DRUGS (4)
  1. ACCUTANE [Suspect]
     Indication: ACNE CYSTIC
     Dosage: ORAL
     Route: 048
     Dates: start: 19970315, end: 19980519
  2. AMOXIL [Concomitant]
  3. SPORANOX [Concomitant]
  4. DOXYCYCLINE [Concomitant]

REACTIONS (11)
  - ANAEMIA [None]
  - CELLULITIS [None]
  - COLITIS [None]
  - COLITIS ULCERATIVE [None]
  - CROHN'S DISEASE [None]
  - DYSPNOEA EXERTIONAL [None]
  - ILEITIS [None]
  - ILEUS [None]
  - INFLAMMATORY BOWEL DISEASE [None]
  - PROCTITIS ULCERATIVE [None]
  - PSORIASIS [None]
